FAERS Safety Report 8156270-X (Version None)
Quarter: 2012Q1

REPORT INFORMATION
  Report Type: 
  Country: None (occurrence: None)
  Receive Date: 20120216
  Receipt Date: 20120130
  Transmission Date: 20120608
  Serious: Yes (Death, Hospitalization)
  Sender: FDA-Public Use
  Company Number: GER/GRE/12/0022945

PATIENT
  Age: 75 Year
  Sex: Male

DRUGS (10)
  1. CLOPIDOGREL [Suspect]
  2. PANTOPRAZOLE [Concomitant]
  3. DIGITALIS (DIGITALIS PURPUREA) [Concomitant]
  4. FUROSEMIDE [Concomitant]
  5. ERYTHROPOIETIN (ERYTHROPOIETIN) (ERYTHROPOIETIN) [Concomitant]
  6. DANAZOL [Concomitant]
  7. FOLIC ACID [Concomitant]
  8. METHYLPREDNISOLONE [Suspect]
  9. LENOGRASTIM (LENOGRASTIM) (LENOGRASTIM) [Concomitant]
  10. METFORMIN HCL [Concomitant]

REACTIONS (3)
  - ACUTE MYOCARDIAL INFARCTION [None]
  - BONE MARROW FAILURE [None]
  - PNEUMOCYSTIS JIROVECI PNEUMONIA [None]
